FAERS Safety Report 11068776 (Version 2)
Quarter: 2015Q2

REPORT INFORMATION
  Report Type: Report from Study
  Country: DE (occurrence: DE)
  Receive Date: 20150427
  Receipt Date: 20150513
  Transmission Date: 20150821
  Serious: Yes (Hospitalization, Other)
  Sender: FDA-Public Use
  Company Number: PHHY2011DE113862

PATIENT
  Age: 53 Year
  Sex: Female

DRUGS (6)
  1. EXTAVIA [Suspect]
     Active Substance: INTERFERON BETA-1B
     Dosage: 250 UG/ML, QOD
     Route: 058
  2. EXTAVIA [Suspect]
     Active Substance: INTERFERON BETA-1B
     Dosage: 187.5 UG/ML, QOD
     Route: 058
  3. EXTAVIA [Suspect]
     Active Substance: INTERFERON BETA-1B
     Dosage: 250 UG/ML, QOD
     Route: 058
  4. EXTAVIA [Suspect]
     Active Substance: INTERFERON BETA-1B
     Indication: MULTIPLE SCLEROSIS
     Dosage: 125 UG/ML, QOD
     Route: 058
     Dates: start: 20110920
  5. EXTAVIA [Suspect]
     Active Substance: INTERFERON BETA-1B
     Dosage: 250 UG/ML, QOD
     Route: 058
     Dates: end: 20150331
  6. EXTAVIA [Suspect]
     Active Substance: INTERFERON BETA-1B
     Dosage: 187.5 UG/ML, QOD
     Route: 058
     Dates: start: 20150412

REACTIONS (9)
  - Multiple sclerosis relapse [Not Recovered/Not Resolved]
  - Nightmare [Recovering/Resolving]
  - Gait disturbance [Not Recovered/Not Resolved]
  - Breast cancer [Not Recovered/Not Resolved]
  - Poor quality sleep [Recovering/Resolving]
  - Movement disorder [Recovered/Resolved]
  - Paralysis [Recovering/Resolving]
  - Feeling hot [Not Recovered/Not Resolved]
  - Musculoskeletal stiffness [Recovered/Resolved]

NARRATIVE: CASE EVENT DATE: 201110
